FAERS Safety Report 8373010-X (Version None)
Quarter: 2012Q2

REPORT INFORMATION
  Report Type: 
  Country: None (occurrence: None)
  Receive Date: 20120521
  Receipt Date: 20120220
  Transmission Date: 20120825
  Serious: No
  Sender: FDA-Public Use
  Company Number: US-ASTRAZENECA-2012SE13902

PATIENT
  Sex: Female

DRUGS (2)
  1. PRILOSEC OTC [Suspect]
     Route: 048
  2. PRILOSEC OTC [Suspect]
     Dosage: UNK DOSE, UNK FREQ FOR 65 DAYS
     Route: 048
     Dates: start: 20111210, end: 20120213

REACTIONS (3)
  - INCORRECT DRUG ADMINISTRATION DURATION [None]
  - URTICARIA [None]
  - PRURITUS [None]
